FAERS Safety Report 8130652-4 (Version None)
Quarter: 2012Q1

REPORT INFORMATION
  Report Type: 
  Country: None (occurrence: None)
  Receive Date: 20120213
  Receipt Date: 20120203
  Transmission Date: 20120608
  Serious: Yes (Hospitalization)
  Sender: FDA-Public Use
  Company Number: US-BIOGENIDEC-2011BI041021

PATIENT
  Age: 58 Year
  Sex: Female

DRUGS (5)
  1. AVONEX [Suspect]
     Route: 030
     Dates: start: 20070625, end: 20080731
  2. AVONEX [Suspect]
     Route: 030
     Dates: start: 20111001
  3. AVONEX [Suspect]
     Route: 030
     Dates: start: 20080821
  4. AVONEX [Suspect]
     Indication: MULTIPLE SCLEROSIS
     Route: 030
     Dates: start: 19990801, end: 20060821
  5. AVONEX [Suspect]
     Route: 030
     Dates: start: 20061127, end: 20070611

REACTIONS (4)
  - LOSS OF CONSCIOUSNESS [None]
  - INFLUENZA LIKE ILLNESS [None]
  - LIMB INJURY [None]
  - ROAD TRAFFIC ACCIDENT [None]
